FAERS Safety Report 14885936 (Version 2)
Quarter: 2019Q1

REPORT INFORMATION
  Report Type: Spontaneous
  Country: US (occurrence: US)
  Receive Date: 20180512
  Receipt Date: 20190326
  Transmission Date: 20190417
  Serious: Yes (Other)
  Sender: FDA-Public Use
  Company Number: US-ASTRAZENECA-2018SE61366

PATIENT
  Age: 18284 Day
  Sex: Female
  Weight: 112.9 kg

DRUGS (18)
  1. LEXAPRO [Concomitant]
     Active Substance: ESCITALOPRAM OXALATE
  2. MIRAPEX [Concomitant]
     Active Substance: PRAMIPEXOLE DIHYDROCHLORIDE
  3. TRAMADOL. [Concomitant]
     Active Substance: TRAMADOL
  4. PREVACID [Suspect]
     Active Substance: LANSOPRAZOLE
     Route: 065
  5. LEVOTHYROXINE. [Concomitant]
     Active Substance: LEVOTHYROXINE
  6. AZITHROMYCIN ANHYDROUS. [Concomitant]
     Active Substance: AZITHROMYCIN ANHYDROUS
  7. PRILOSEC [Suspect]
     Active Substance: OMEPRAZOLE MAGNESIUM
     Indication: GASTROOESOPHAGEAL REFLUX DISEASE
     Route: 048
     Dates: start: 1998, end: 2008
  8. PRILOSEC [Suspect]
     Active Substance: OMEPRAZOLE MAGNESIUM
     Indication: GASTROOESOPHAGEAL REFLUX DISEASE
     Route: 048
     Dates: start: 1998, end: 2003
  9. PRILOSEC [Suspect]
     Active Substance: OMEPRAZOLE MAGNESIUM
     Indication: GASTROOESOPHAGEAL REFLUX DISEASE
     Dosage: 20.0MG UNKNOWN
     Route: 048
     Dates: start: 19980226
  10. NEXIUM [Suspect]
     Active Substance: ESOMEPRAZOLE MAGNESIUM
     Indication: GASTROOESOPHAGEAL REFLUX DISEASE
     Route: 048
     Dates: start: 1998, end: 2008
  11. LEVOXYL [Concomitant]
     Active Substance: LEVOTHYROXINE SODIUM
  12. CYCLOBENZAPRINE. [Concomitant]
     Active Substance: CYCLOBENZAPRINE
  13. NEXIUM [Suspect]
     Active Substance: ESOMEPRAZOLE MAGNESIUM
     Indication: GASTROOESOPHAGEAL REFLUX DISEASE
     Route: 048
     Dates: start: 2005, end: 2011
  14. PRILOSEC [Suspect]
     Active Substance: OMEPRAZOLE MAGNESIUM
     Indication: GASTROOESOPHAGEAL REFLUX DISEASE
     Dosage: GENERIC
     Route: 065
  15. CRESTOR [Concomitant]
     Active Substance: ROSUVASTATIN CALCIUM
  16. FERROUS SULFATE. [Concomitant]
     Active Substance: FERROUS SULFATE
  17. FUROSEMIDE. [Concomitant]
     Active Substance: FUROSEMIDE
  18. ZETIA [Concomitant]
     Active Substance: EZETIMIBE

REACTIONS (9)
  - Diabetes mellitus [Not Recovered/Not Resolved]
  - Renal failure [Not Recovered/Not Resolved]
  - Nephrogenic anaemia [Unknown]
  - Chronic kidney disease [Unknown]
  - Cardiac disorder [Not Recovered/Not Resolved]
  - Cardiac failure [Unknown]
  - Hypertension [Not Recovered/Not Resolved]
  - Cardiac failure congestive [Unknown]
  - Myocardial infarction [Unknown]

NARRATIVE: CASE EVENT DATE: 20080619
